FAERS Safety Report 9108667 (Version 1)
Quarter: 2013Q1

REPORT INFORMATION
  Report Type: Spontaneous
  Country: US (occurrence: US)
  Receive Date: 20130222
  Receipt Date: 20130222
  Transmission Date: 20140127
  Serious: No
  Sender: FDA-Public Use
  Company Number: US-BIOGENIDEC-2008BI029132

PATIENT
  Age: 65 Year
  Sex: Female

DRUGS (1)
  1. TYSABRI [Suspect]
     Indication: MULTIPLE SCLEROSIS
     Route: 042
     Dates: start: 20080813, end: 20081014

REACTIONS (9)
  - Visual impairment [Not Recovered/Not Resolved]
  - Musculoskeletal disorder [Unknown]
  - Optic neuritis [Recovered/Resolved]
  - Depression [Not Recovered/Not Resolved]
  - Alopecia [Not Recovered/Not Resolved]
  - Bruxism [Not Recovered/Not Resolved]
  - Animal bite [Recovered/Resolved]
  - Stress [Unknown]
  - Bone disorder [Unknown]
